FAERS Safety Report 6988519-0 (Version None)
Quarter: 2010Q3

REPORT INFORMATION
  Report Type: 
  Country: None (occurrence: None)
  Receive Date: 20100916
  Receipt Date: 20100906
  Transmission Date: 20110219
  Serious: Yes (Other)
  Sender: FDA-Public Use
  Company Number: DE-PFIZER INC-2010112220

PATIENT
  Age: 41 Year
  Sex: Female
  Weight: 54 kg

DRUGS (3)
  1. DEPO-CLINOVIR [Suspect]
     Indication: OFF LABEL USE
     Dosage: 1 DF, UNK
     Route: 030
     Dates: start: 20091201
  2. DEPO-CLINOVIR [Suspect]
     Indication: ENDOMETRIOSIS
  3. DEPO-CLINOVIR [Suspect]
     Indication: DYSMENORRHOEA

REACTIONS (1)
  - CEREBELLAR INFARCTION [None]
